FAERS Safety Report 5282195-3 (Version None)
Quarter: 2007Q1

REPORT INFORMATION
  Report Type: 
  Country: None (occurrence: None)
  Receive Date: 20070330
  Receipt Date: 20070320
  Transmission Date: 20070707
  Serious: Yes (Death, Life-Threatening, Hospitalization, Other)
  Sender: FDA-Public Use
  Company Number: JP-PFIZER INC-2007018371

PATIENT
  Age: 75 Year
  Sex: Male

DRUGS (6)
  1. SOLU-MEDROL [Suspect]
     Indication: HYPERSENSITIVITY
     Dates: start: 20040415, end: 20040417
  2. PREDNISOLONE [Suspect]
     Indication: HYPERSENSITIVITY
     Dosage: FREQ:TAPERING DOSE
     Route: 048
     Dates: start: 20040101, end: 20040101
  3. TAURINE [Concomitant]
     Indication: BILIARY TRACT DISORDER
     Route: 048
     Dates: start: 20040321, end: 20040403
  4. URSODIOL [Concomitant]
     Indication: BILIARY TRACT DISORDER
     Route: 048
     Dates: start: 20040411, end: 20040401
  5. GANCICLOVIR [Concomitant]
  6. IMMUNOGLOBULINS [Concomitant]

REACTIONS (6)
  - BLOOD CREATININE INCREASED [None]
  - BLOOD UREA INCREASED [None]
  - CYTOMEGALOVIRUS INFECTION [None]
  - DISSEMINATED INTRAVASCULAR COAGULATION [None]
  - DUODENAL ULCER HAEMORRHAGE [None]
  - MULTI-ORGAN FAILURE [None]
